FAERS Safety Report 19866098 (Version 3)
Quarter: 2022Q2

REPORT INFORMATION
  Report Type: Spontaneous
  Country: BE (occurrence: BE)
  Receive Date: 20210922
  Receipt Date: 20220419
  Transmission Date: 20220721
  Serious: Yes (Life-Threatening, Hospitalization)
  Sender: FDA-Public Use
  Company Number: BE-ACCORD-237877

PATIENT
  Age: 72 Year
  Sex: Male
  Weight: 71.9 kg

DRUGS (32)
  1. EPCORITAMAB [Suspect]
     Active Substance: EPCORITAMAB
     Indication: Diffuse large B-cell lymphoma stage IV
     Dosage: FULL DOSE: 48 MG, WEEKLY
     Route: 058
     Dates: start: 20210819
  2. EPCORITAMAB [Suspect]
     Active Substance: EPCORITAMAB
     Dosage: PRIMING DOSE: 0.16 MILLIGRAM
     Route: 058
     Dates: start: 20210803, end: 20210803
  3. EPCORITAMAB [Suspect]
     Active Substance: EPCORITAMAB
     Dosage: INTERMEDIATE DOSE: 0.8 MILLIGRAM
     Route: 058
     Dates: start: 20210810, end: 20210810
  4. CYCLOPHOSPHAMIDE [Suspect]
     Active Substance: CYCLOPHOSPHAMIDE
     Indication: Diffuse large B-cell lymphoma stage IV
     Dosage: (FORM STRENGTH: 750 MILLIGRAM/SQ. METER) 1Q3W
     Route: 042
     Dates: start: 20210803
  5. RITUXIMAB [Suspect]
     Active Substance: RITUXIMAB
     Indication: Diffuse large B-cell lymphoma stage IV
     Dosage: (FORM STRENGTH: 375 MILLIGRAM/SQ. METER), 1Q3W
     Route: 042
     Dates: start: 20210803
  6. VINCRISTINE [Suspect]
     Active Substance: VINCRISTINE
     Indication: Diffuse large B-cell lymphoma stage IV
     Dosage: (FORM STRENGTH: 1.4 MILLIGRAM/SQ. METER), 1Q3W
     Route: 042
     Dates: start: 20210803
  7. PREDNISONE [Suspect]
     Active Substance: PREDNISONE
     Indication: Diffuse large B-cell lymphoma stage IV
     Dosage: (FORM STRENGTH: 80 MILLIGRAM), QD
     Route: 048
     Dates: start: 20210803, end: 20210803
  8. PREDNISONE [Suspect]
     Active Substance: PREDNISONE
     Dosage: (FORM STRENGTH: 80 MILLIGRAM)
     Route: 048
     Dates: start: 20210804
  9. DOXORUBICIN [Suspect]
     Active Substance: DOXORUBICIN
     Indication: Diffuse large B-cell lymphoma stage IV
     Dosage: (FORM STRENGTH: 750 MILLIGRAM/SQ. METER)
     Route: 042
     Dates: start: 20210803
  10. DOXORUBICIN [Suspect]
     Active Substance: DOXORUBICIN
     Route: 042
     Dates: start: 20210803
  11. ALIZAPRIDE HYDROCHLORIDE [Concomitant]
     Active Substance: ALIZAPRIDE HYDROCHLORIDE
     Dates: start: 20210803, end: 20210803
  12. SOLU-MEDROL [Concomitant]
     Active Substance: METHYLPREDNISOLONE SODIUM SUCCINATE
     Dosage: UNK
     Dates: start: 20210729, end: 20210802
  13. METHYLPREDNISOLONE [Concomitant]
     Active Substance: METHYLPREDNISOLONE
     Dates: start: 20210729, end: 20210802
  14. METHYLPREDNISOLONE [Concomitant]
     Active Substance: METHYLPREDNISOLONE
     Dosage: STRENGTH: 80MG
     Route: 048
     Dates: start: 20210810, end: 20210819
  15. ASPIRIN [Concomitant]
     Active Substance: ASPIRIN
     Dates: start: 2021
  16. ONDANSETRON [Concomitant]
     Active Substance: ONDANSETRON
     Dates: start: 20210804, end: 20210807
  17. CHOLECALCIFEROL [Concomitant]
     Active Substance: CHOLECALCIFEROL
     Dates: start: 2021
  18. SULFAMETHOXAZOLE\TRIMETHOPRIM [Concomitant]
     Active Substance: SULFAMETHOXAZOLE\TRIMETHOPRIM
     Dates: start: 20210804
  19. ESOMEPRAZOLE [Concomitant]
     Active Substance: ESOMEPRAZOLE
     Dates: start: 20210821
  20. LIPEGFILGRASTIM [Concomitant]
     Active Substance: LIPEGFILGRASTIM
     Dates: start: 20210806, end: 20210806
  21. LEVOCETIRIZINE [Concomitant]
     Active Substance: LEVOCETIRIZINE
     Dosage: STRENGTH: 5MG
     Route: 048
     Dates: start: 20210810, end: 20210819
  22. LEVOCETIRIZINE [Concomitant]
     Active Substance: LEVOCETIRIZINE
     Route: 048
     Dates: start: 20210817, end: 20210817
  23. LEVOCETIRIZINE [Concomitant]
     Active Substance: LEVOCETIRIZINE
     Route: 048
     Dates: start: 20210810, end: 20210810
  24. BEFACT [Concomitant]
     Dates: start: 20210812
  25. CRESTOR [Concomitant]
     Active Substance: ROSUVASTATIN CALCIUM
     Dates: start: 2021
  26. ACYCLOVIR [Concomitant]
     Active Substance: ACYCLOVIR
     Dates: start: 20210803
  27. FENOFIBRATE [Concomitant]
     Active Substance: FENOFIBRATE
     Dates: start: 2021
  28. FASTURTEC [Concomitant]
     Active Substance: RASBURICASE
     Dates: start: 20210802, end: 20210806
  29. PANTOPRAZOLE SODIUM [Concomitant]
     Active Substance: PANTOPRAZOLE SODIUM
     Dates: start: 20210726
  30. ACETAMINOPHEN [Concomitant]
     Active Substance: ACETAMINOPHEN
     Dosage: STRENGTH: 1GM
     Route: 048
     Dates: start: 20210810, end: 20210819
  31. ENOXAPARIN SODIUM [Concomitant]
     Active Substance: ENOXAPARIN SODIUM
     Dates: start: 20210726
  32. PALONOSETRON [Concomitant]
     Active Substance: PALONOSETRON
     Dates: start: 20210803, end: 20210803

REACTIONS (2)
  - Cytokine release syndrome [Recovered/Resolved]
  - Febrile neutropenia [Recovered/Resolved]

NARRATIVE: CASE EVENT DATE: 20210811
